FAERS Safety Report 12893544 (Version 1)
Quarter: 2016Q4

REPORT INFORMATION
  Report Type: Spontaneous
  Country: CA (occurrence: CA)
  Receive Date: 20161028
  Receipt Date: 20161028
  Transmission Date: 20170207
  Serious: Yes (Hospitalization, Other)
  Sender: FDA-Public Use
  Company Number: CA-SA-2016SA194865

PATIENT
  Age: 50 Year
  Sex: Female

DRUGS (5)
  1. CYCLOSPORINE. [Suspect]
     Active Substance: CYCLOSPORINE
     Indication: PROPHYLAXIS AGAINST GRAFT VERSUS HOST DISEASE
     Dosage: DOSE: 2 DOSES
     Route: 065
  2. FLUDARABINE PHOSPHATE. [Suspect]
     Active Substance: FLUDARABINE PHOSPHATE
     Indication: BONE MARROW CONDITIONING REGIMEN
     Route: 065
  3. CYCLOPHOSPHAMIDE. [Suspect]
     Active Substance: CYCLOPHOSPHAMIDE
     Indication: PROPHYLAXIS AGAINST GRAFT VERSUS HOST DISEASE
     Dosage: DOSE: 2 DOSES
     Route: 065
  4. BUSULFAN. [Suspect]
     Active Substance: BUSULFAN
     Indication: BONE MARROW CONDITIONING REGIMEN
     Route: 065
  5. ANTI-THYMOCYTE GLOBULIN (RABBIT) [Suspect]
     Active Substance: LAPINE T-LYMPHOCYTE IMMUNE GLOBULIN
     Indication: PROPHYLAXIS AGAINST GRAFT VERSUS HOST DISEASE
     Route: 065

REACTIONS (16)
  - Pyrexia [Recovering/Resolving]
  - Fatigue [Recovering/Resolving]
  - Cytomegalovirus infection [Unknown]
  - Haematuria [Recovering/Resolving]
  - Hilar lymphadenopathy [Recovering/Resolving]
  - Skin lesion [Recovering/Resolving]
  - Lung consolidation [Recovering/Resolving]
  - Dyspnoea [Recovering/Resolving]
  - Staphylococcal infection [Unknown]
  - Pancytopenia [Unknown]
  - Viral haemorrhagic cystitis [Unknown]
  - Pleural effusion [Recovering/Resolving]
  - Disseminated tuberculosis [Recovering/Resolving]
  - Lymphadenopathy mediastinal [Recovering/Resolving]
  - Respiratory distress [Recovering/Resolving]
  - Off label use [Unknown]
